FAERS Safety Report 6630229-3 (Version None)
Quarter: 2010Q1

REPORT INFORMATION
  Report Type: 
  Country: None (occurrence: None)
  Receive Date: 20100311
  Receipt Date: 20100305
  Transmission Date: 20100710
  Serious: Yes (Other)
  Sender: FDA-Public Use
  Company Number: A0849358A

PATIENT
  Age: 36 Year
  Sex: Female

DRUGS (4)
  1. COMBIVIR [Suspect]
     Indication: ANTIVIRAL TREATMENT
     Dosage: 1TAB PER DAY
     Route: 048
     Dates: start: 20081103
  2. NORVIR [Suspect]
     Indication: ANTIVIRAL TREATMENT
     Dosage: 100MG PER DAY
     Route: 048
     Dates: start: 20080315, end: 20081103
  3. REYATAZ [Suspect]
     Indication: ANTIVIRAL TREATMENT
     Dosage: 300MG PER DAY
     Route: 048
     Dates: start: 20080315, end: 20081103
  4. KALETRA [Suspect]
     Indication: ANTIVIRAL TREATMENT
     Dosage: 4TAB PER DAY
     Route: 048
     Dates: start: 20081103

REACTIONS (4)
  - BRADYCARDIA FOETAL [None]
  - DRUG EXPOSURE DURING PREGNANCY [None]
  - PLACENTAL INSUFFICIENCY [None]
  - STILLBIRTH [None]
